FAERS Safety Report 7124214-5 (Version None)
Quarter: 2010Q4

REPORT INFORMATION
  Report Type: 
  Country: None (occurrence: None)
  Receive Date: 20101126
  Receipt Date: 20101119
  Transmission Date: 20110411
  Serious: Yes (Hospitalization, Other)
  Sender: FDA-Public Use
  Company Number: US-AMGEN-USASP2010006109

PATIENT

DRUGS (2)
  1. ENBREL [Suspect]
     Indication: RHEUMATOID ARTHRITIS
     Dosage: 50 MG, QWK
     Dates: start: 20020101
  2. METHOTREXATE [Concomitant]
     Dosage: 1 MG, UNK
     Dates: start: 20010101

REACTIONS (5)
  - ARTHRALGIA [None]
  - CLOSTRIDIAL INFECTION [None]
  - JOINT STIFFNESS [None]
  - KNEE ARTHROPLASTY [None]
  - OSTEOARTHRITIS [None]
